FAERS Safety Report 4698251-4 (Version None)
Quarter: 2005Q2

REPORT INFORMATION
  Report Type: 
  Country: None (occurrence: None)
  Receive Date: 20050623
  Receipt Date: 20050617
  Transmission Date: 20051028
  Serious: Yes (Hospitalization, Other)
  Sender: FDA-Public Use
  Company Number: 200515102US

PATIENT
  Sex: Female
  Weight: 45.5 kg

DRUGS (4)
  1. LOVENOX [Suspect]
     Indication: ANTITHROMBIN III DEFICIENCY
  2. COUMADIN [Concomitant]
     Dosage: DOSE: NOT PROVIDED
  3. TOPROL-XL [Concomitant]
     Dosage: DOSE: NOT PROVIDED
  4. UNKNOWN DRUG [Concomitant]
     Dosage: DOSE: NOT PROVIDED

REACTIONS (6)
  - GANGRENE [None]
  - LIMB INJURY [None]
  - PAIN [None]
  - ULCER [None]
  - VASCULITIS [None]
  - WOUND [None]
